FAERS Safety Report 15821104 (Version 1)
Quarter: 2020Q3

REPORT INFORMATION
  Report Type: Spontaneous
  Country: GB (occurrence: GB)
  Receive Date: 20190114
  Receipt Date: 20190114
  Transmission Date: 20201104
  Serious: Yes (Other)
  Sender: FDA-Public Use
  Company Number: IND-GB-009507513-1901GBR002173

PATIENT
  Age: 55 Year
  Sex: Female

DRUGS (4)
  1. ETORICOXIB. [Suspect]
     Active Substance: ETORICOXIB
     Dosage: 90 MILLIGRAM, QD
  2. ACETAMINOPHEN AND CODEINE [Concomitant]
     Active Substance: ACETAMINOPHEN\CODEINE PHOSPHATE
     Dosage: 30/500(UNIT UNKNOWN). 1?2 FOUR TIMES A DAY (AS NECESSARY).
  3. EVENING PRIMROSE OIL [Concomitant]
     Active Substance: EVENING PRIMROSE OIL\HERBALS
     Dosage: UNK
  4. GLUCOSAMINE HYDROCHLORIDE [Concomitant]
     Active Substance: GLUCOSAMINE HYDROCHLORIDE

REACTIONS (1)
  - Urinary tract infection [Recovered/Resolved]
